FAERS Safety Report 9963246 (Version 1)
Quarter: 2014Q1

REPORT INFORMATION
  Report Type: Spontaneous
  Country: US (occurrence: US)
  Receive Date: 20140305
  Receipt Date: 20140305
  Transmission Date: 20141002
  Serious: No
  Sender: FDA-Public Use
  Company Number: US-ABBVIE-13P-163-1117592-00

PATIENT
  Sex: Female
  Weight: 84.9 kg

DRUGS (19)
  1. HUMIRA [Suspect]
     Indication: PSORIATIC ARTHROPATHY
     Dates: start: 2008
  2. REQUIP [Concomitant]
     Indication: PARKINSON^S DISEASE
  3. SINEMET [Concomitant]
     Indication: PARKINSON^S DISEASE
  4. LODOSYN [Concomitant]
     Indication: PARKINSON^S DISEASE
  5. METHOTREXATE [Concomitant]
     Indication: PSORIATIC ARTHROPATHY
  6. DICLOFENAC [Concomitant]
     Indication: ANTIINFLAMMATORY THERAPY
  7. ATENOLOL [Concomitant]
     Indication: BLOOD PRESSURE
  8. SPIRONLACTONE [Concomitant]
     Indication: ILL-DEFINED DISORDER
  9. SINGULAIR [Concomitant]
     Indication: ASTHMA
  10. PREMARIN [Concomitant]
     Indication: HORMONE REPLACEMENT THERAPY
  11. AMITRIPTYLINE [Concomitant]
     Indication: ILL-DEFINED DISORDER
  12. CLONAZEPAM [Concomitant]
     Indication: ILL-DEFINED DISORDER
  13. CYCLOBENZAPRINE [Concomitant]
     Indication: MUSCLE RELAXANT THERAPY
  14. HYDROCODONE [Concomitant]
     Indication: PAIN
  15. VITAMIN B12 [Concomitant]
     Indication: PRODUCT USED FOR UNKNOWN INDICATION
  16. DULARA [Concomitant]
     Indication: ASTHMA
  17. FOLIC ACID [Concomitant]
     Indication: PRODUCT USED FOR UNKNOWN INDICATION
  18. LUNESTA [Concomitant]
     Indication: INSOMNIA
  19. ALBUTEROL [Concomitant]
     Indication: ASTHMA
     Route: 055

REACTIONS (4)
  - Throat irritation [Not Recovered/Not Resolved]
  - Laryngitis [Not Recovered/Not Resolved]
  - Oropharyngeal pain [Not Recovered/Not Resolved]
  - Asthma [Unknown]
